FAERS Safety Report 4622059-9 (Version None)
Quarter: 2005Q1

REPORT INFORMATION
  Report Type: 
  Country: None (occurrence: None)
  Receive Date: 20050328
  Receipt Date: 20050315
  Transmission Date: 20050727
  Serious: Yes (Death)
  Sender: FDA-Public Use
  Company Number: S05-USA-01025-01

PATIENT
  Age: 25 Year
  Sex: Female
  Weight: 53.0709 kg

DRUGS (3)
  1. CELEXA [Suspect]
     Dates: end: 20030125
  2. SANDOPTAL (BUTALBITAL) [Suspect]
     Indication: PAIN
     Dates: end: 20030125
  3. METHADONE HCL [Suspect]
     Indication: PAIN
     Dates: end: 20030125

REACTIONS (3)
  - DRUG TOXICITY [None]
  - MULTIPLE DRUG OVERDOSE [None]
  - SEDATION [None]
